FAERS Safety Report 8351456-3 (Version None)
Quarter: 2012Q2

REPORT INFORMATION
  Report Type: 
  Country: None (occurrence: None)
  Receive Date: 20120510
  Receipt Date: 20120501
  Transmission Date: 20120825
  Serious: Yes (Other)
  Sender: FDA-Public Use
  Company Number: GB-ROCHE-1052363

PATIENT
  Age: 46 Year
  Sex: Male

DRUGS (15)
  1. ACTEMRA [Suspect]
     Indication: AMYLOIDOSIS
  2. FUROSEMIDE [Concomitant]
     Indication: CARDIAC DISORDER
     Route: 048
  3. HYDROCORTISONE [Concomitant]
  4. MIRTAZAPINE [Concomitant]
  5. ADCAL - D3 [Concomitant]
  6. ALFACALCIDOL [Concomitant]
  7. ACTEMRA [Suspect]
     Indication: ARTHRITIS
     Dates: start: 20120301
  8. ACETAMINOPHEN [Concomitant]
     Indication: PAIN
     Route: 048
  9. CLOPIDOGREL [Concomitant]
     Indication: CARDIAC DISORDER
     Route: 048
  10. RANITIDINE [Concomitant]
  11. METOCLOPRAMIDE [Concomitant]
  12. SIMVASTATIN [Concomitant]
     Indication: BLOOD CHOLESTEROL
     Route: 048
  13. DIHYDROCODEINE BITARTRATE INJ [Concomitant]
     Indication: PAIN
     Route: 048
  14. FEXOFENADINE [Concomitant]
  15. PREDNISOLONE [Concomitant]

REACTIONS (6)
  - RASH [None]
  - NAUSEA [None]
  - SWELLING FACE [None]
  - OEDEMA PERIPHERAL [None]
  - PAIN IN EXTREMITY [None]
  - EYE HAEMORRHAGE [None]
